FAERS Safety Report 6842605-4 (Version None)
Quarter: 2010Q3

REPORT INFORMATION
  Report Type: 
  Country: None (occurrence: None)
  Receive Date: 20100714
  Receipt Date: 20070801
  Transmission Date: 20110219
  Serious: No
  Sender: FDA-Public Use
  Company Number: US-PFIZER INC-2007065585

PATIENT
  Sex: Female
  Weight: 129.7 kg

DRUGS (7)
  1. CHANTIX [Suspect]
     Indication: SMOKING CESSATION THERAPY
     Dates: start: 20070313
  2. ALPRAZOLAM [Concomitant]
  3. HYDROCODONE [Concomitant]
  4. MOTRIN [Concomitant]
  5. RANITIDINE [Concomitant]
  6. B-KOMPLEX ^LECIVA^ [Concomitant]
  7. PYRIDOXINE HYDROCHLORIDE [Concomitant]

REACTIONS (1)
  - TOBACCO USER [None]
